FAERS Safety Report 5318404-1 (Version None)
Quarter: 2007Q2

REPORT INFORMATION
  Report Type: 
  Country: None (occurrence: None)
  Receive Date: 20070501
  Receipt Date: 20070419
  Transmission Date: 20071010
  Serious: Yes (Other)
  Sender: FDA-Public Use
  Company Number: 155611ISR

PATIENT
  Age: 49 Year
  Sex: Female

DRUGS (2)
  1. TAMOXIFEN CITRATE [Suspect]
     Indication: BREAST CANCER
     Dosage: 20 MG (20 MG, 1 IN 1 D), ORAL
     Route: 048
     Dates: start: 20060301
  2. GOSERELIN [Suspect]
     Indication: BREAST CANCER
     Dosage: (3.6 GRAM 1 IN 1 M)

REACTIONS (2)
  - ARTHRALGIA [None]
  - FLUID RETENTION [None]
